FAERS Safety Report 10863661 (Version 4)
Quarter: 2015Q3

REPORT INFORMATION
  Report Type: Spontaneous
  Country: US (occurrence: US)
  Receive Date: 20150224
  Receipt Date: 20150721
  Transmission Date: 20151125
  Serious: Yes (Hospitalization, Disabling)
  Sender: FDA-Public Use
  Company Number: US-UNITED THERAPEUTICS-UNT-2015-001871

PATIENT
  Age: 36 Year
  Sex: Female
  Weight: 68.27 kg

DRUGS (5)
  1. REVATIO [Concomitant]
     Active Substance: SILDENAFIL CITRATE
     Indication: PRODUCT USED FOR UNKNOWN INDICATION
  2. REMODULIN [Suspect]
     Active Substance: TREPROSTINIL
     Indication: PULMONARY HYPERTENSION
     Dosage: 0.060 ?G/KG/MIN, CONTINUING
     Route: 041
     Dates: start: 20080804
  3. OPSUMIT [Concomitant]
     Active Substance: MACITENTAN
     Indication: PRODUCT USED FOR UNKNOWN INDICATION
  4. WARFARIN [Concomitant]
     Active Substance: WARFARIN
     Indication: PRODUCT USED FOR UNKNOWN INDICATION
  5. REMODULIN [Suspect]
     Active Substance: TREPROSTINIL
     Indication: PULMONARY ARTERIAL HYPERTENSION
     Dosage: 0.060 ?G/KG/MIN, CONTINUING
     Route: 041
     Dates: start: 20080804

REACTIONS (8)
  - Pneumonia [Unknown]
  - Asthenia [Unknown]
  - Injection site haemorrhage [Unknown]
  - Device related infection [Unknown]
  - Mobility decreased [Unknown]
  - Pyrexia [Unknown]
  - Dyspnoea [Unknown]
  - Cough [Unknown]

NARRATIVE: CASE EVENT DATE: 20150213
